FAERS Safety Report 9982552 (Version 1)
Quarter: 2014Q1

REPORT INFORMATION
  Report Type: Report from Study
  Country: US (occurrence: US)
  Receive Date: 20140307
  Receipt Date: 20140307
  Transmission Date: 20141002
  Serious: No
  Sender: FDA-Public Use
  Company Number: US-ABBVIE-13P-163-1180724-00

PATIENT
  Age: 56 Year
  Sex: Male

DRUGS (9)
  1. HUMIRA [Suspect]
     Indication: ANKYLOSING SPONDYLITIS
     Dates: start: 20131113
  2. HUMIRA [Suspect]
     Dates: start: 20131213
  3. PROAIR [Concomitant]
     Indication: ASTHMA
     Dosage: BLOOD PRESSURE MEDICATION
  4. VICODIN [Concomitant]
     Indication: PAIN
     Dosage: 3 OR 4 A DAY
  5. ASMANEX [Concomitant]
     Indication: ASTHMA
     Dosage: ASTHMA INHALER
  6. FLUTICASONE PROPIONATE [Concomitant]
     Indication: PRODUCT USED FOR UNKNOWN INDICATION
     Dosage: PRESCRIPTION NASAL SPRAY
  7. ALLEGRA [Concomitant]
     Indication: ASTHMA
  8. PEPCID [Concomitant]
     Indication: NAUSEA
  9. TRIAZOLONE [Concomitant]
     Indication: INSOMNIA

REACTIONS (7)
  - Dizziness [Recovered/Resolved]
  - Nausea [Unknown]
  - Vomiting [Unknown]
  - Diarrhoea [Unknown]
  - Ankylosing spondylitis [Unknown]
  - Loss of consciousness [Unknown]
  - Fear of injection [Unknown]
